FAERS Safety Report 9702466 (Version 3)
Quarter: 2014Q1

REPORT INFORMATION
  Report Type: Spontaneous
  Country: US (occurrence: US)
  Receive Date: 20131121
  Receipt Date: 20140121
  Transmission Date: 20141002
  Serious: No
  Sender: FDA-Public Use
  Company Number: US-PFIZER INC-2013333114

PATIENT
  Age: 52 Year
  Sex: Male

DRUGS (3)
  1. ALTACE [Suspect]
     Indication: PROPHYLAXIS
     Dosage: UNK
     Route: 065
  2. BYDUREON [Interacting]
     Indication: TYPE 2 DIABETES MELLITUS
     Dosage: 2 MG, WEEKLY
     Route: 058
  3. METFORMIN [Concomitant]

REACTIONS (11)
  - Drug interaction [Recovered/Resolved]
  - Headache [Recovered/Resolved]
  - Pain [Unknown]
  - Pruritus [Unknown]
  - Pyrexia [Unknown]
  - Injection site mass [Unknown]
  - Constipation [Unknown]
  - Diarrhoea [Unknown]
  - Nausea [Unknown]
  - Back pain [Unknown]
  - Glycosylated haemoglobin increased [Unknown]
